FAERS Safety Report 10226319 (Version 2)
Quarter: 2014Q2

REPORT INFORMATION
  Report Type: Spontaneous
  Country: PL (occurrence: PL)
  Receive Date: 20140609
  Receipt Date: 20140623
  Transmission Date: 20141212
  Serious: Yes (Death, Other)
  Sender: FDA-Public Use
  Company Number: PL-BAXTER-2014BAX028518

PATIENT
  Age: 36 Year
  Sex: Female

DRUGS (15)
  1. FLUCONAZOLE REDIBAG 2 MG/ML [Suspect]
     Indication: SKIN LESION
     Route: 065
  2. FLUCONAZOLE REDIBAG 2 MG/ML [Suspect]
     Indication: ORAL DISORDER
  3. CYCLOSPORIN A [Suspect]
     Indication: SKIN LESION
     Route: 065
  4. CYCLOSPORIN A [Suspect]
     Indication: ORAL DISORDER
  5. DEXAMETHASONE [Suspect]
     Indication: SKIN LESION
     Route: 065
  6. DEXAMETHASONE [Suspect]
     Indication: ORAL DISORDER
  7. IBUPROFEN [Concomitant]
     Indication: ARTHROPOD BITE
     Route: 065
  8. BISOPROLOL [Concomitant]
     Indication: PRODUCT USED FOR UNKNOWN INDICATION
     Route: 065
  9. LACIDIPINE [Concomitant]
     Indication: PRODUCT USED FOR UNKNOWN INDICATION
     Route: 065
  10. PREDNISONE [Concomitant]
     Indication: ERYTHEMA
     Route: 065
  11. PREDNISONE [Concomitant]
     Indication: PYREXIA
  12. PREDNISONE [Concomitant]
     Indication: CONJUNCTIVITIS
  13. CLARITHROMYCIN [Concomitant]
     Indication: ERYTHEMA
     Route: 065
  14. CLARITHROMYCIN [Concomitant]
     Indication: PYREXIA
  15. CLARITHROMYCIN [Concomitant]
     Indication: CONJUNCTIVITIS

REACTIONS (4)
  - Multi-organ failure [Fatal]
  - Septic shock [Unknown]
  - Brain abscess [Unknown]
  - Hemiparesis [Unknown]
